FAERS Safety Report 4860171-X (Version None)
Quarter: 2005Q4

REPORT INFORMATION
  Report Type: 
  Country: None (occurrence: None)
  Receive Date: 20051219
  Receipt Date: 20051020
  Transmission Date: 20060501
  Serious: Yes (Hospitalization)
  Sender: FDA-Public Use
  Company Number: NZ-ROCHE-421615

PATIENT
  Age: 69 Year
  Sex: Male
  Weight: 74 kg

DRUGS (11)
  1. IBANDRONIC ACID [Suspect]
     Route: 042
     Dates: start: 20051007, end: 20051009
  2. PREDNISONE TAB [Concomitant]
     Dates: start: 20010615
  3. ATENOLOL [Concomitant]
     Dates: start: 20030615
  4. ENALAPRIL [Concomitant]
     Dates: start: 19990615
  5. FERRO-GRADUMET [Concomitant]
     Dates: start: 19990615
  6. EPOETIN BETA [Concomitant]
     Dates: start: 20050815
  7. OMEPRAZOLE [Concomitant]
     Dates: start: 20030615
  8. FELODIPINE [Concomitant]
     Dates: start: 20040615
  9. OSTEO [Concomitant]
     Dates: start: 20050315
  10. ROCALTROL [Concomitant]
     Dates: start: 20050715
  11. FRUSEMIDE [Concomitant]
     Dates: start: 20010615

REACTIONS (7)
  - ANOREXIA [None]
  - CONFUSIONAL STATE [None]
  - HYPOAESTHESIA [None]
  - HYPOCALCAEMIA [None]
  - LETHARGY [None]
  - MUSCLE TWITCHING [None]
  - OEDEMA PERIPHERAL [None]
